FAERS Safety Report 16733762 (Version 1)
Quarter: 2019Q3

REPORT INFORMATION
  Report Type: Spontaneous
  Country: US (occurrence: US)
  Receive Date: 20190823
  Receipt Date: 20190823
  Transmission Date: 20191005
  Serious: No
  Sender: FDA-Public Use
  Company Number: US-PAREXEL-2018US012615

PATIENT

DRUGS (7)
  1. ELIGARD [Suspect]
     Active Substance: LEUPROLIDE ACETATE
     Indication: PROSTATE CANCER
     Dosage: 45 MG,  EVERY 6 MONTH
     Route: 065
  2. HYDROCHLOROTHIAZIDE. [Concomitant]
     Active Substance: HYDROCHLOROTHIAZIDE
  3. LOVASTATIN. [Concomitant]
     Active Substance: LOVASTATIN
  4. WARFARIN [Concomitant]
     Active Substance: WARFARIN
  5. ENALAPRIL [Concomitant]
     Active Substance: ENALAPRIL
  6. METOPROLOL. [Concomitant]
     Active Substance: METOPROLOL
  7. VITAMIN D3 [Concomitant]
     Active Substance: CHOLECALCIFEROL

REACTIONS (3)
  - Groin pain [Recovered/Resolved]
  - Wrong technique in product usage process [Unknown]
  - Injection site nodule [Recovered/Resolved]

NARRATIVE: CASE EVENT DATE: 2018
